FAERS Safety Report 18559779 (Version 4)
Quarter: 2021Q1

REPORT INFORMATION
  Report Type: Report from Study
  Country: US (occurrence: US)
  Receive Date: 20201130
  Receipt Date: 20210303
  Transmission Date: 20210419
  Serious: Yes (Hospitalization)
  Sender: FDA-Public Use
  Company Number: US-JAZZ-2020-US-015410

PATIENT
  Age: 56 Year
  Sex: Female

DRUGS (60)
  1. XYREM [Suspect]
     Active Substance: SODIUM OXYBATE
     Dosage: 4.5 GRAM, BID
     Route: 048
     Dates: start: 202004
  2. CYMBALTA [Concomitant]
     Active Substance: DULOXETINE HYDROCHLORIDE
  3. TRAZODONE [Concomitant]
     Active Substance: TRAZODONE HYDROCHLORIDE
  4. FENOFIBRIC ACID. [Concomitant]
     Active Substance: FENOFIBRIC ACID
  5. SINGULAIR [Concomitant]
     Active Substance: MONTELUKAST SODIUM
  6. ATORVASTATIN [Concomitant]
     Active Substance: ATORVASTATIN
  7. INCRUSE ELLIPTA [Concomitant]
     Active Substance: UMECLIDINIUM BROMIDE
  8. LITHIUM CARBONATE. [Concomitant]
     Active Substance: LITHIUM CARBONATE
  9. NYSTATIN. [Concomitant]
     Active Substance: NYSTATIN
  10. OXYGEN. [Concomitant]
     Active Substance: OXYGEN
  11. TORSEMIDE. [Concomitant]
     Active Substance: TORSEMIDE
  12. ZOLOFT [Concomitant]
     Active Substance: SERTRALINE HYDROCHLORIDE
  13. LABETALOL HCL [Concomitant]
     Active Substance: LABETALOL HYDROCHLORIDE
  14. NUEDEXTA [Concomitant]
     Active Substance: DEXTROMETHORPHAN HYDROBROMIDE\QUINIDINE SULFATE
  15. OMEPRAZOLE. [Concomitant]
     Active Substance: OMEPRAZOLE
  16. OXYCODONE AND ACETAMINOPHEN [Concomitant]
     Active Substance: ACETAMINOPHEN\OXYCODONE HYDROCHLORIDE
  17. REMERON [Concomitant]
     Active Substance: MIRTAZAPINE
  18. VITAMIN C [Concomitant]
     Active Substance: ASCORBIC ACID
  19. XYREM [Suspect]
     Active Substance: SODIUM OXYBATE
     Dosage: 8 GRAMS DAILY
     Route: 048
     Dates: start: 20200714
  20. AMITRIPTYLINE HCL [Concomitant]
     Active Substance: AMITRIPTYLINE
  21. ALENDRONATE SODIUM. [Concomitant]
     Active Substance: ALENDRONATE SODIUM
  22. FLUVOXAMINE MALEATE. [Concomitant]
     Active Substance: FLUVOXAMINE MALEATE
  23. STOOL SOFTENER (DOCUSATE) [Concomitant]
     Active Substance: DOCUSATE
  24. SYNTHROID [Concomitant]
     Active Substance: LEVOTHYROXINE SODIUM
  25. ZOFRAN [Concomitant]
     Active Substance: ONDANSETRON HYDROCHLORIDE
  26. XYREM [Suspect]
     Active Substance: SODIUM OXYBATE
     Dosage: DOSE ADJUSTMENT
     Route: 048
     Dates: start: 201706, end: 202004
  27. FUROSEMIDE. [Concomitant]
     Active Substance: FUROSEMIDE
  28. COMBIVENT RESPIMAT [Concomitant]
     Active Substance: ALBUTEROL SULFATE\IPRATROPIUM BROMIDE
  29. XANAX [Concomitant]
     Active Substance: ALPRAZOLAM
  30. ADDERALL [Concomitant]
     Active Substance: AMPHETAMINE ASPARTATE\AMPHETAMINE SULFATE\DEXTROAMPHETAMINE SACCHARATE\DEXTROAMPHETAMINE SULFATE
  31. GABAPENTIN. [Concomitant]
     Active Substance: GABAPENTIN
  32. HYDROCORTISONE. [Concomitant]
     Active Substance: HYDROCORTISONE
  33. IMITREX [Concomitant]
     Active Substance: SUMATRIPTAN SUCCINATE
  34. KETAMINE [Concomitant]
     Active Substance: KETAMINE
  35. WELLBUTRIN [Concomitant]
     Active Substance: BUPROPION HYDROCHLORIDE
  36. CETIRIZINE HCL [Concomitant]
     Active Substance: CETIRIZINE HYDROCHLORIDE
  37. ABILIFY [Concomitant]
     Active Substance: ARIPIPRAZOLE
  38. CALCIUM [Concomitant]
     Active Substance: CALCIUM
  39. FLONASE ALLERGY RELIEF [Concomitant]
     Active Substance: FLUTICASONE PROPIONATE
  40. PROAIR RESPICLICK [Concomitant]
     Active Substance: ALBUTEROL SULFATE
  41. REXULTI [Concomitant]
     Active Substance: BREXPIPRAZOLE
  42. SUNOSI [Concomitant]
     Active Substance: SOLRIAMFETOL
  43. XYREM [Suspect]
     Active Substance: SODIUM OXYBATE
     Indication: NARCOLEPSY
     Dosage: 2.25 GRAM, BID
     Route: 048
     Dates: start: 201705, end: 201706
  44. OXYBUTYNIN. [Concomitant]
     Active Substance: OXYBUTYNIN CHLORIDE
  45. PROAIR HFA [Concomitant]
     Active Substance: ALBUTEROL SULFATE
  46. VITAMIN B COMPLEX [Concomitant]
     Active Substance: CYANOCOBALAMIN\DEXPANTHENOL\NIACINAMIDE\PYRIDOXINE HYDROCHLORIDE\RIBOFLAVIN 5^-PHOSPHATE SODIUM\THIAMINE HYDROCHLORIDE\VITAMIN B COMPLEX
  47. AUSTEDO [Concomitant]
     Active Substance: DEUTETRABENAZINE
  48. VRAYLAR [Concomitant]
     Active Substance: CARIPRAZINE
  49. POTASSIUM CHLORIDE. [Concomitant]
     Active Substance: POTASSIUM CHLORIDE
  50. MYDAYIS [Concomitant]
     Active Substance: AMPHETAMINE ASPARTATE\AMPHETAMINE SULFATE\DEXTROAMPHETAMINE SACCHARATE\DEXTROAMPHETAMINE SULFATE
  51. MYRBETRIQ [Concomitant]
     Active Substance: MIRABEGRON
  52. PROZAC [Concomitant]
     Active Substance: FLUOXETINE HYDROCHLORIDE
  53. VITAMIN D2 [Concomitant]
     Active Substance: ERGOCALCIFEROL
  54. WAKIX [Concomitant]
     Active Substance: PITOLISANT HYDROCHLORIDE
  55. BUPROPION HCL [Concomitant]
     Active Substance: BUPROPION HYDROCHLORIDE
  56. METOPROLOL TARTRATE. [Concomitant]
     Active Substance: METOPROLOL TARTRATE
  57. WARFARIN SODIUM. [Concomitant]
     Active Substance: WARFARIN SODIUM
  58. LOMOTIL [LOPERAMIDE HYDROCHLORIDE] [Concomitant]
     Active Substance: LOPERAMIDE HYDROCHLORIDE
  59. PITOLISANT [Concomitant]
     Active Substance: PITOLISANT
  60. VALIUM [Concomitant]
     Active Substance: DIAZEPAM

REACTIONS (2)
  - Hyponatraemia [Recovered/Resolved]
  - Fall [Recovered/Resolved]

NARRATIVE: CASE EVENT DATE: 202011
